FAERS Safety Report 16384087 (Version 2)
Quarter: 2019Q2

REPORT INFORMATION
  Report Type: Spontaneous
  Country: FR (occurrence: FR)
  Receive Date: 20190603
  Receipt Date: 20190613
  Transmission Date: 20190711
  Serious: Yes (Hospitalization)
  Sender: FDA-Public Use
  Company Number: FR-ACCORD-130839

PATIENT
  Age: 75 Year
  Sex: Female

DRUGS (12)
  1. FOLIC ACID. [Concomitant]
     Active Substance: FOLIC ACID
  2. CEFTRIAXONE. [Suspect]
     Active Substance: CEFTRIAXONE
     Indication: URINARY TRACT INFECTION
     Route: 042
     Dates: start: 20190328, end: 20190408
  3. PARACETAMOL [Concomitant]
     Active Substance: ACETAMINOPHEN
  4. SERESTA [Concomitant]
     Active Substance: OXAZEPAM
  5. OLANZAPINE. [Concomitant]
     Active Substance: OLANZAPINE
  6. MACROGOL 3350/POTASSIUM CHLORIDE/SODIUM BICARBONATE/SODIUM CHLORIDE [Concomitant]
  7. CALCIDOSE VITAMIN D [Concomitant]
     Active Substance: CALCIUM CARBONATE\CHOLECALCIFEROL
     Dosage: ORAL POWDER IN SACHET-DOSE
  8. DIFFU K [Concomitant]
     Active Substance: POTASSIUM CHLORIDE
  9. LEVETIRACETAM. [Suspect]
     Active Substance: LEVETIRACETAM
     Indication: PRODUCT USED FOR UNKNOWN INDICATION
  10. TEGRETOL [Concomitant]
     Active Substance: CARBAMAZEPINE
  11. DEPAMIDE [Concomitant]
     Active Substance: VALPROMIDE
  12. BISOCE [Concomitant]
     Active Substance: BISOPROLOL

REACTIONS (1)
  - Anaemia [Recovering/Resolving]

NARRATIVE: CASE EVENT DATE: 20190408
